FAERS Safety Report 6121880-8 (Version None)
Quarter: 2009Q1

REPORT INFORMATION
  Report Type: 
  Country: None (occurrence: None)
  Receive Date: 20090313
  Receipt Date: 20090302
  Transmission Date: 20090719
  Serious: Yes (Other)
  Sender: FDA-Public Use
  Company Number: 2009AP000889

PATIENT

DRUGS (3)
  1. GABAPENTIN [Suspect]
     Indication: PAIN
     Dosage: PO, CAP; PO
     Route: 048
  2. AMITRIPTYLINE HYDROCHLORIDE [Suspect]
     Dosage: 10 MG; QD PO, 10 MG; TAB; PO; QD
     Route: 048
  3. LORAZEPAM [Suspect]
     Dosage: 1 MG; QD PO, 1 MG; TAB; PO; QD
     Route: 048

REACTIONS (3)
  - HERPES ZOSTER [None]
  - PAIN IN EXTREMITY [None]
  - RASH MACULO-PAPULAR [None]
